FAERS Safety Report 7008862-9 (Version None)
Quarter: 2010Q3

REPORT INFORMATION
  Report Type: 
  Country: None (occurrence: None)
  Receive Date: 20100923
  Receipt Date: 20100914
  Transmission Date: 20110219
  Serious: Yes (Hospitalization)
  Sender: FDA-Public Use
  Company Number: US-BIOGENIDEC-2010BI013791

PATIENT
  Age: 48 Year
  Sex: Female

DRUGS (3)
  1. TYSABRI [Suspect]
     Indication: MULTIPLE SCLEROSIS
     Route: 042
     Dates: start: 20050218, end: 20050218
  2. TYSABRI [Suspect]
     Route: 042
     Dates: start: 20080702, end: 20100323
  3. TYSABRI [Suspect]
     Route: 042
     Dates: start: 20100713

REACTIONS (6)
  - ANAEMIA [None]
  - BLOOD CALCIUM DECREASED [None]
  - BLOOD TEST ABNORMAL [None]
  - DYSSTASIA [None]
  - GAIT DISTURBANCE [None]
  - THYROID CANCER [None]
